FAERS Safety Report 13509842 (Version 1)
Quarter: 2017Q2

REPORT INFORMATION
  Report Type: Spontaneous
  Country: US (occurrence: US)
  Receive Date: 20170503
  Receipt Date: 20170503
  Transmission Date: 20170830
  Serious: No
  Sender: FDA-Public Use
  Company Number: US-SA-2017SA047444

PATIENT
  Sex: Female

DRUGS (11)
  1. CARVEDILOL. [Concomitant]
     Active Substance: CARVEDILOL
     Dosage: 12.5 MG
  2. LAMOTRIGINE. [Concomitant]
     Active Substance: LAMOTRIGINE
     Dosage: 100 MG
  3. FUROSEMIDE. [Concomitant]
     Active Substance: FUROSEMIDE
     Dosage: 20 MG
  4. METFORMIN [Concomitant]
     Active Substance: METFORMIN HYDROCHLORIDE
     Dosage: 500 MG
  5. NITROSTAT [Concomitant]
     Active Substance: NITROGLYCERIN
     Dosage: 0.4 MG
     Route: 060
  6. PRALUENT [Suspect]
     Active Substance: ALIROCUMAB
     Route: 058
  7. ALIROCUMAB PREFILLED PEN [Concomitant]
     Active Substance: ALIROCUMAB
  8. FENOFIBRATE. [Concomitant]
     Active Substance: FENOFIBRATE
     Dosage: 160 MG
  9. POTASSIUM CHLORIDE. [Concomitant]
     Active Substance: POTASSIUM CHLORIDE
     Dosage: 10 MEQ ER
  10. TRAZODONE [Concomitant]
     Active Substance: TRAZODONE HYDROCHLORIDE
     Dosage: 150 MG
  11. METOPROLOL. [Concomitant]
     Active Substance: METOPROLOL
     Dosage: 50 MG ER

REACTIONS (1)
  - Pain [Not Recovered/Not Resolved]
